FAERS Safety Report 9152155 (Version 2)
Quarter: 2013Q1

REPORT INFORMATION
  Report Type: Spontaneous
  Country: FR (occurrence: FR)
  Receive Date: 20130308
  Receipt Date: 20130318
  Transmission Date: 20140127
  Serious: Yes (Hospitalization)
  Sender: FDA-Public Use
  Company Number: FR-PFIZER INC-2013074142

PATIENT
  Age: 63 Year
  Sex: Female

DRUGS (5)
  1. XANAX [Suspect]
     Dosage: 0.25 MG, 3X/DAY
     Route: 048
     Dates: end: 20130106
  2. XANAX [Suspect]
     Dosage: UNK
     Route: 048
     Dates: start: 20130110
  3. EFFEXOR - SLOW RELEASE [Concomitant]
     Dosage: 75 MG, 2X/DAY
  4. TAHOR [Concomitant]
     Dosage: 40 MG, 1X/DAY
  5. DEPAKINE CHRONO [Concomitant]
     Dosage: 500 MG, 2X/DAY

REACTIONS (8)
  - Withdrawal syndrome [Recovered/Resolved]
  - Abnormal behaviour [Unknown]
  - Aggression [Unknown]
  - Confusional state [Unknown]
  - Encephalopathy [Unknown]
  - Psychomotor hyperactivity [Unknown]
  - Anxiety [Unknown]
  - Toxicity to various agents [Recovered/Resolved]
